FAERS Safety Report 21284162 (Version 1)
Quarter: 2022Q3

REPORT INFORMATION
  Report Type: Spontaneous
  Country: DE (occurrence: DE)
  Receive Date: 20220902
  Receipt Date: 20220902
  Transmission Date: 20221026
  Serious: Yes (Other)
  Sender: FDA-Public Use
  Company Number: DE-SUN PHARMACEUTICAL INDUSTRIES LTD-2022R1-352963

PATIENT
  Age: 35 Year
  Sex: Female

DRUGS (10)
  1. ALLOPURINOL [Suspect]
     Active Substance: ALLOPURINOL
     Indication: Product used for unknown indication
     Route: 065
  2. EMPAGLIFLOZIN [Suspect]
     Active Substance: EMPAGLIFLOZIN
     Indication: Neutrophil count abnormal
     Dosage: 10 MILLIGRAM, DAILY
     Route: 065
  3. EMPAGLIFLOZIN [Suspect]
     Active Substance: EMPAGLIFLOZIN
     Dosage: 15 MILLIGRAM, DAILY
     Route: 065
  4. EMPAGLIFLOZIN [Suspect]
     Active Substance: EMPAGLIFLOZIN
     Dosage: 20 MILLIGRAM, DAILY
     Route: 065
  5. MISOPROSTOL [Suspect]
     Active Substance: MISOPROSTOL
     Indication: Prophylaxis
     Dosage: 1 MG
     Route: 054
  6. ENOXAPARIN SODIUM [Suspect]
     Active Substance: ENOXAPARIN SODIUM
     Indication: Product used for unknown indication
     Route: 065
  7. MEDICAL FOOD [Suspect]
     Active Substance: MEDICAL FOOD
     Indication: Product used for unknown indication
     Dosage: AT NIGHT
     Route: 065
  8. HEPARIN [Suspect]
     Active Substance: HEPARIN SODIUM
     Indication: Product used for unknown indication
     Dosage: UNK UNK, BID
     Route: 058
  9. OXYTOCIN [Suspect]
     Active Substance: OXYTOCIN
     Indication: Prophylaxis
     Dosage: 23 IU
     Route: 042
  10. PHENPROCOUMON [Suspect]
     Active Substance: PHENPROCOUMON
     Indication: Product used for unknown indication
     Route: 065

REACTIONS (4)
  - Exposure during pregnancy [Unknown]
  - Therapy non-responder [Unknown]
  - Oral disorder [Unknown]
  - Live birth [Unknown]
